FAERS Safety Report 24608765 (Version 1)
Quarter: 2024Q4

REPORT INFORMATION
  Report Type: Spontaneous
  Country: US (occurrence: US)
  Receive Date: 20241112
  Receipt Date: 20241112
  Transmission Date: 20250115
  Serious: No
  Sender: CHEMISCHE FABRIK KREUSSLER
  Company Number: me043

PATIENT

DRUGS (1)
  1. ASCLERA [Suspect]
     Active Substance: POLIDOCANOL
     Indication: Product used for unknown indication

REACTIONS (1)
  - Extravasation [Unknown]
